FAERS Safety Report 6122904-4 (Version None)
Quarter: 2009Q1

REPORT INFORMATION
  Report Type: 
  Country: None (occurrence: None)
  Receive Date: 20090318
  Receipt Date: 20090313
  Transmission Date: 20090719
  Serious: Yes (Death, Hospitalization)
  Sender: FDA-Public Use
  Company Number: BR-ABBOTT-07P-020-0427725-00

PATIENT
  Sex: Male
  Weight: 74 kg

DRUGS (2)
  1. HUMIRA [Suspect]
     Indication: RHEUMATOID ARTHRITIS
     Route: 058
     Dates: start: 20060501, end: 20081101
  2. UNKNOWN THERAPY [Concomitant]
     Indication: DRUG USE FOR UNKNOWN INDICATION

REACTIONS (11)
  - CARDIAC ARREST [None]
  - CONFUSIONAL STATE [None]
  - DIABETES MELLITUS [None]
  - FATIGUE [None]
  - GAIT DISTURBANCE [None]
  - HEADACHE [None]
  - HYPERTENSION [None]
  - IMMUNODEFICIENCY [None]
  - INFECTION [None]
  - INFLUENZA [None]
  - RENAL IMPAIRMENT [None]
